FAERS Safety Report 7234974-0 (Version None)
Quarter: 2010Q4

REPORT INFORMATION
  Report Type: 
  Country: None (occurrence: None)
  Receive Date: 20101130
  Receipt Date: 20090820
  Transmission Date: 20110411
  Serious: Yes (Hospitalization)
  Sender: FDA-Public Use
  Company Number: 2009-195828-NL

PATIENT
  Age: 19 Year
  Sex: Female
  Weight: 74.3899 kg

DRUGS (3)
  1. NUVARING [Suspect]
     Indication: CONTRACEPTION
     Dosage: 1 DF
     Dates: start: 20070703, end: 20070918
  2. IBUPROFEN [Concomitant]
  3. GARDASIL [Concomitant]

REACTIONS (4)
  - DEEP VEIN THROMBOSIS [None]
  - EMOTIONAL DISORDER [None]
  - JOINT SPRAIN [None]
  - MIGRAINE WITH AURA [None]
